FAERS Safety Report 6249295-2 (Version None)
Quarter: 2009Q2

REPORT INFORMATION
  Report Type: 
  Country: None (occurrence: None)
  Receive Date: 20090629
  Receipt Date: 20090501
  Transmission Date: 20091009
  Serious: Yes (Other)
  Sender: FDA-Public Use
  Company Number: US-BRISTOL-MYERS SQUIBB COMPANY-14592950

PATIENT
  Age: 44 Year
  Sex: Male

DRUGS (1)
  1. SPRYCEL [Suspect]
     Indication: CHRONIC MYELOID LEUKAEMIA
     Dosage: DOSAE WAS DECREASED TO 50 MG QD TAKING FROM 2007 TO 15-APR-2009
     Route: 048
     Dates: start: 20060101

REACTIONS (1)
  - DRUG RESISTANCE [None]
